FAERS Safety Report 6094604-0 (Version None)
Quarter: 2009Q1

REPORT INFORMATION
  Report Type: 
  Country: None (occurrence: None)
  Receive Date: 20090226
  Receipt Date: 20090220
  Transmission Date: 20090719
  Serious: Yes (Disabling)
  Sender: FDA-Public Use
  Company Number: PHHY2009ES06264

PATIENT
  Age: 70 Year
  Sex: Male

DRUGS (3)
  1. GLEEVEC [Suspect]
     Indication: CHRONIC MYELOID LEUKAEMIA
     Dosage: 400 MG, UNK
     Route: 048
     Dates: start: 20081101, end: 20090101
  2. BETA BLOCKING AGENTS [Concomitant]
  3. PLATELET AGGREGATION INHIBITORS [Concomitant]

REACTIONS (3)
  - DERMATITIS ALLERGIC [None]
  - EOSINOPHILIA [None]
  - RASH ERYTHEMATOUS [None]
